FAERS Safety Report 12459948 (Version 1)
Quarter: 2016Q2

REPORT INFORMATION
  Report Type: Spontaneous
  Country: US (occurrence: US)
  Receive Date: 20160613
  Receipt Date: 20160613
  Transmission Date: 20160815
  Serious: No
  Sender: FDA-Public Use
  Company Number: US-LEO PHARMA-242226

PATIENT
  Sex: Female

DRUGS (1)
  1. PICATO [Suspect]
     Active Substance: INGENOL MEBUTATE
     Indication: ACTINIC KERATOSIS
     Route: 061
     Dates: start: 20160524, end: 20160524

REACTIONS (2)
  - Incorrect drug administration duration [Unknown]
  - Keratosis pilaris [Not Recovered/Not Resolved]

NARRATIVE: CASE EVENT DATE: 20160524
